FAERS Safety Report 21045013 (Version 1)
Quarter: 2022Q3

REPORT INFORMATION
  Report Type: Spontaneous
  Country: SA (occurrence: SA)
  Receive Date: 20220705
  Receipt Date: 20220705
  Transmission Date: 20221026
  Serious: Yes (Hospitalization, Other)
  Sender: FDA-Public Use
  Company Number: SA-JAZZ-2022-SA-022086

PATIENT
  Age: 15 Year
  Sex: Female

DRUGS (1)
  1. ASPARAGINASE [Suspect]
     Active Substance: ASPARAGINASE
     Indication: Acute myeloid leukaemia
     Dosage: UNK

REACTIONS (7)
  - Febrile neutropenia [Not Recovered/Not Resolved]
  - Pneumothorax [Unknown]
  - Respiratory distress [Unknown]
  - Cough [Unknown]
  - Tachypnoea [Unknown]
  - Pyrexia [Recovering/Resolving]
  - Lower respiratory tract infection [Unknown]
